FAERS Safety Report 7672874-2 (Version None)
Quarter: 2011Q3

REPORT INFORMATION
  Report Type: 
  Country: None (occurrence: None)
  Receive Date: 20110809
  Receipt Date: 20110420
  Transmission Date: 20111222
  Serious: Yes (Other)
  Sender: FDA-Public Use
  Company Number: PHHY2011IE03011

PATIENT
  Age: 56 Year
  Sex: Female

DRUGS (6)
  1. TEGRETOL [Suspect]
     Indication: EPILEPSY
     Dosage: 600 MG, BID
     Route: 048
  2. TEGRETOL [Interacting]
     Dosage: 500 MG, DAILY (200MG MORNING AND 300MG NIGHT)
     Route: 048
  3. LIPITOR [Interacting]
     Indication: BLOOD CHOLESTEROL INCREASED
     Dosage: 40 MG, QD
  4. LEVOTHYROXINE SODIUM [Interacting]
     Dosage: 125 UG, QD
  5. LEVOTHYROXINE SODIUM [Interacting]
     Indication: HYPOTHYROIDISM
     Dosage: 100 UG, QD
  6. SERETIDE [Concomitant]
     Indication: ASTHMA
     Dosage: UNK UKN, UNK

REACTIONS (4)
  - ANTICONVULSANT DRUG LEVEL INCREASED [None]
  - AMNESIA [None]
  - CONFUSIONAL STATE [None]
  - DRUG INTERACTION [None]
